FAERS Safety Report 16291705 (Version 2)
Quarter: 2019Q2

REPORT INFORMATION
  Report Type: Spontaneous
  Country: TH (occurrence: TH)
  Receive Date: 20190509
  Receipt Date: 20190530
  Transmission Date: 20190711
  Serious: Yes (Life-Threatening, Hospitalization, Other)
  Sender: FDA-Public Use
  Company Number: TH-ACCORD-125731

PATIENT
  Age: 52 Year
  Sex: Male

DRUGS (1)
  1. GEMCITABINE/GEMCITABINE HYDROCHLORIDE [Suspect]
     Active Substance: GEMCITABINE\GEMCITABINE HYDROCHLORIDE
     Indication: CHOLANGIOCARCINOMA
     Dosage: 1000 MG/SQ.METRE,1200 MG ON 22/02/2017 AND 12/07/2017
     Route: 042
     Dates: start: 2017, end: 2017

REACTIONS (6)
  - Tubulointerstitial nephritis [Recovered/Resolved]
  - Lupus nephritis [Recovered/Resolved]
  - Thrombocytopenia [Recovered/Resolved]
  - Haemolytic anaemia [Recovered/Resolved]
  - Acute kidney injury [Recovered/Resolved]
  - Thrombotic microangiopathy [Recovering/Resolving]

NARRATIVE: CASE EVENT DATE: 20170621
